FAERS Safety Report 9792067 (Version 2)
Quarter: 2014Q1

REPORT INFORMATION
  Report Type: Spontaneous
  Country: TR (occurrence: TR)
  Receive Date: 20140102
  Receipt Date: 20140127
  Transmission Date: 20141002
  Serious: Yes (Death, Other)
  Sender: FDA-Public Use
  Company Number: TR-BAYER-2013-157866

PATIENT
  Sex: 0

DRUGS (2)
  1. MIRENA [Suspect]
     Dosage: 20 MCG/24HR, CONT
     Route: 064
     Dates: start: 2013
  2. MIRENA [Suspect]
     Dosage: 20 MCG/24HR, CONT
     Route: 064
     Dates: start: 2013

REACTIONS (4)
  - Foetal heart rate abnormal [Fatal]
  - Foetal heart rate disorder [None]
  - Infection [None]
  - Foetal exposure during pregnancy [None]
